FAERS Safety Report 6226458-3 (Version None)
Quarter: 2009Q2

REPORT INFORMATION
  Report Type: 
  Country: None (occurrence: None)
  Receive Date: 20090612
  Receipt Date: 20090514
  Transmission Date: 20091009
  Serious: No
  Sender: FDA-Public Use
  Company Number: US-ABBOTT-09P-163-0573925-00

PATIENT
  Sex: Female
  Weight: 52.21 kg

DRUGS (9)
  1. HUMIRA [Suspect]
     Indication: ANKYLOSING SPONDYLITIS
     Route: 058
     Dates: start: 20081001
  2. PREMARIN [Concomitant]
     Indication: DRUG USE FOR UNKNOWN INDICATION
  3. SYNTHROID [Concomitant]
     Indication: DRUG USE FOR UNKNOWN INDICATION
  4. SEROQUEL [Concomitant]
     Indication: DRUG USE FOR UNKNOWN INDICATION
  5. CELEXA [Concomitant]
     Indication: DRUG USE FOR UNKNOWN INDICATION
  6. FLEXERIL [Concomitant]
     Indication: DRUG USE FOR UNKNOWN INDICATION
  7. HYDROCODONE BITARTRATE [Concomitant]
     Indication: DRUG USE FOR UNKNOWN INDICATION
  8. VITAMIN B-12 [Concomitant]
     Indication: DRUG USE FOR UNKNOWN INDICATION
  9. FISH OIL [Concomitant]
     Indication: DRUG USE FOR UNKNOWN INDICATION

REACTIONS (5)
  - BACK PAIN [None]
  - RHINORRHOEA [None]
  - SINUS CONGESTION [None]
  - SNEEZING [None]
  - URTICARIA [None]
